FAERS Safety Report 15684892 (Version 1)
Quarter: 2018Q4

REPORT INFORMATION
  Report Type: Spontaneous
  Country: US (occurrence: US)
  Receive Date: 20181204
  Receipt Date: 20181204
  Transmission Date: 20190205
  Serious: No
  Sender: FDA-Public Use
  Company Number: US-ANTARES PHARMA, INC.-2018-LIT-ME-0515

PATIENT
  Age: 59 Year
  Sex: Female

DRUGS (1)
  1. METHOTREXATE. [Suspect]
     Active Substance: METHOTREXATE
     Indication: GRANULOMA ANNULARE
     Dosage: 15 MG, WEEKLY
     Route: 048

REACTIONS (3)
  - Aspartate aminotransferase increased [Unknown]
  - Liver function test increased [Unknown]
  - Alanine aminotransferase increased [Unknown]
